FAERS Safety Report 13528332 (Version 1)
Quarter: 2017Q2

REPORT INFORMATION
  Report Type: Spontaneous
  Country: DE (occurrence: DE)
  Receive Date: 20170509
  Receipt Date: 20170509
  Transmission Date: 20170830
  Serious: Yes (Hospitalization, Other)
  Sender: FDA-Public Use
  Company Number: DE-TEVA-763995GER

PATIENT
  Age: 56 Year
  Sex: Female

DRUGS (16)
  1. AMISULPRID [Interacting]
     Active Substance: AMISULPRIDE
     Dates: start: 20150806, end: 20150812
  2. AMISULPRID [Interacting]
     Active Substance: AMISULPRIDE
     Dates: start: 20150827, end: 20150828
  3. CLOZAPIN [Suspect]
     Active Substance: CLOZAPINE
     Dates: start: 20150724, end: 20150728
  4. CLOZAPIN [Interacting]
     Active Substance: CLOZAPINE
     Dates: start: 20150817, end: 20150821
  5. AMISULPRID [Interacting]
     Active Substance: AMISULPRIDE
     Dates: start: 20150815, end: 20150826
  6. AMISULPRID [Interacting]
     Active Substance: AMISULPRIDE
     Dates: start: 20150813, end: 20150814
  7. PIRENZEPINE [Concomitant]
     Active Substance: PIRENZEPINE
     Dosage: LONG TIME MEDICATION
  8. CLOZAPIN [Interacting]
     Active Substance: CLOZAPINE
     Dates: start: 20150729, end: 20150814
  9. CLOZAPIN [Interacting]
     Active Substance: CLOZAPINE
     Dates: start: 20150822, end: 20150901
  10. CALCIUM SANDOZ [Concomitant]
     Active Substance: CALCIUM
     Dosage: LONG TIME MEDICATION
  11. ASPIRIN. [Concomitant]
     Active Substance: ASPIRIN
     Dosage: LONG TIME MEDICATION
  12. HCT [Concomitant]
     Active Substance: HYDROCHLOROTHIAZIDE
     Dosage: LONG TIME MEDICATION
  13. CITALOPRAM [Concomitant]
     Active Substance: CITALOPRAM HYDROBROMIDE
     Dosage: LONG TIME MEDICATION
  14. VITAMIN D [Concomitant]
     Active Substance: CHOLECALCIFEROL
     Dosage: LONG TIME MEDICATION
  15. CLOZAPIN [Interacting]
     Active Substance: CLOZAPINE
  16. LORAZEPAM. [Concomitant]
     Active Substance: LORAZEPAM
     Dates: start: 20150724, end: 20151022

REACTIONS (2)
  - Generalised tonic-clonic seizure [Recovered/Resolved]
  - Drug interaction [Recovered/Resolved]

NARRATIVE: CASE EVENT DATE: 20150814
